FAERS Safety Report 6051375-1 (Version None)
Quarter: 2009Q1

REPORT INFORMATION
  Report Type: 
  Country: None (occurrence: None)
  Receive Date: 20090126
  Receipt Date: 20090116
  Transmission Date: 20090719
  Serious: Yes (Hospitalization)
  Sender: FDA-Public Use
  Company Number: FR-ASTRAZENECA-2008CG00641

PATIENT
  Age: 54 Year
  Sex: Male

DRUGS (4)
  1. CRESTOR [Suspect]
     Indication: HYPERCHOLESTEROLAEMIA
     Route: 048
     Dates: start: 20050101, end: 20090101
  2. KARDEGIC [Concomitant]
  3. COAPROVEL [Concomitant]
  4. SEROPLEX [Concomitant]
     Dates: start: 20080421

REACTIONS (1)
  - AMYOTROPHIC LATERAL SCLEROSIS [None]
